FAERS Safety Report 16145510 (Version 1)
Quarter: 2019Q2

REPORT INFORMATION
  Report Type: Spontaneous
  Country: GB (occurrence: GB)
  Receive Date: 20190402
  Receipt Date: 20190402
  Transmission Date: 20190711
  Serious: Yes (Death, Life-Threatening, Hospitalization)
  Sender: FDA-Public Use
  Company Number: GB-ACCORD-117225

PATIENT
  Age: 9 Year
  Sex: Female
  Weight: 30 kg

DRUGS (13)
  1. ONDANSETRON [Concomitant]
     Active Substance: ONDANSETRON
  2. RANITIDINE. [Concomitant]
     Active Substance: RANITIDINE
  3. ALFACALCIDOL [Concomitant]
     Active Substance: ALFACALCIDOL
  4. VENOFER [Concomitant]
     Active Substance: IRON SUCROSE
  5. NEORECORMON [Concomitant]
     Active Substance: ERYTHROPOIETIN
  6. AMLODIPINE [Concomitant]
     Active Substance: AMLODIPINE BESYLATE
  7. HYDRALAZINE [Concomitant]
     Active Substance: HYDRALAZINE HYDROCHLORIDE
  8. SERETIDE [Concomitant]
     Active Substance: FLUTICASONE PROPIONATE\SALMETEROL XINAFOATE
  9. TACROLIMUS. [Suspect]
     Active Substance: TACROLIMUS
     Indication: RENAL TRANSPLANT
     Dosage: ADJUSTED AS PER TROUGH LEVEL
     Route: 048
     Dates: start: 20181112
  10. CELLCEPT [Suspect]
     Active Substance: MYCOPHENOLATE MOFETIL\MYCOPHENOLATE MOFETIL HYDROCHLORIDE
     Indication: RENAL TRANSPLANT
     Route: 048
     Dates: start: 20181113, end: 20181120
  11. ZOTON [Concomitant]
     Active Substance: LANSOPRAZOLE
  12. BASILIXIMAB [Suspect]
     Active Substance: BASILIXIMAB
     Indication: RENAL TRANSPLANT
     Dosage: 10MG 2 HOURS PRE-TRANSPLANT AND DAY 4 POST-TRANSPLANT STAT DOSE
     Route: 042
     Dates: start: 20181113, end: 20181117
  13. ZITHROMAX [Concomitant]
     Active Substance: AZITHROMYCIN DIHYDRATE

REACTIONS (11)
  - Ileus [Unknown]
  - Gastrointestinal sounds abnormal [Unknown]
  - Blood pressure increased [Unknown]
  - Colitis [Fatal]
  - Tachycardia [Unknown]
  - Abdominal pain [Unknown]
  - Fluid retention [Unknown]
  - Malaise [Unknown]
  - Urine output decreased [Unknown]
  - Colitis [Unknown]
  - Abdominal distension [Unknown]

NARRATIVE: CASE EVENT DATE: 20181116
